FAERS Safety Report 8002435-7 (Version None)
Quarter: 2011Q4

REPORT INFORMATION
  Report Type: 
  Country: None (occurrence: None)
  Receive Date: 20111222
  Receipt Date: 20111018
  Transmission Date: 20120403
  Serious: No
  Sender: FDA-Public Use
  Company Number: US-GLAXOSMITHKLINE-A0949644A

PATIENT
  Sex: Female

DRUGS (1)
  1. NICORETTE [Suspect]

REACTIONS (1)
  - DRUG INEFFECTIVE [None]
